FAERS Safety Report 7392403-0 (Version None)
Quarter: 2011Q2

REPORT INFORMATION
  Report Type: 
  Country: None (occurrence: None)
  Receive Date: 20110404
  Receipt Date: 20101019
  Transmission Date: 20111010
  Serious: Yes (Other)
  Sender: FDA-Public Use
  Company Number: US-BAYER-201017894NA

PATIENT
  Sex: Female
  Weight: 67 kg

DRUGS (10)
  1. YAZ [Suspect]
     Indication: PREMENSTRUAL SYNDROME
     Dates: start: 20060101, end: 20090101
  2. MOTRIN [Concomitant]
     Dosage: 400 MG, UNK
     Dates: start: 20070623
  3. YAZ [Suspect]
     Indication: DYSMENORRHOEA
  4. AVELOX [Concomitant]
     Dates: start: 20060530
  5. IBUPROFEN [Concomitant]
     Dates: start: 20060920
  6. METHOCARBAMOL [Concomitant]
     Dates: start: 20060920
  7. CEPHALEXIN [Concomitant]
     Dates: start: 20070708
  8. AZITHROMYCIN [Concomitant]
     Dates: start: 20061227
  9. VICODIN [Concomitant]
  10. YASMIN [Suspect]
     Indication: PREMENSTRUAL SYNDROME
     Route: 048
     Dates: start: 20060101, end: 20090101

REACTIONS (3)
  - ABDOMINAL PAIN [None]
  - CHOLECYSTITIS CHRONIC [None]
  - CHOLELITHIASIS [None]
